FAERS Safety Report 14583341 (Version 1)
Quarter: 2018Q1

REPORT INFORMATION
  Report Type: Spontaneous
  Country: AT (occurrence: AT)
  Receive Date: 20180228
  Receipt Date: 20180228
  Transmission Date: 20180509
  Serious: Yes (Hospitalization, Other)
  Sender: FDA-Public Use
  Company Number: AT-OTSUKA-DJ20112559

PATIENT

DRUGS (3)
  1. ABILIFY [Suspect]
     Active Substance: ARIPIPRAZOLE
     Indication: BIPOLAR DISORDER
     Route: 048
     Dates: start: 201010
  2. VALPROATE [Concomitant]
     Active Substance: VALPROIC ACID
     Route: 048
  3. ABILIFY [Suspect]
     Active Substance: ARIPIPRAZOLE
     Indication: BIPOLAR DISORDER
     Route: 048

REACTIONS (3)
  - Psychotic disorder [Recovered/Resolved]
  - Mania [Recovered/Resolved]
  - Psychotic symptom [Recovered/Resolved]

NARRATIVE: CASE EVENT DATE: 201011
